FAERS Safety Report 9476916 (Version 1)
Quarter: 2013Q3

REPORT INFORMATION
  Report Type: Report from Study
  Country: GB (occurrence: GB)
  Receive Date: 20130826
  Receipt Date: 20130826
  Transmission Date: 20140515
  Serious: Yes (Other)
  Sender: FDA-Public Use
  Company Number: GB-GLAXOSMITHKLINE-Z0017762B

PATIENT
  Age: 75 Year
  Sex: Female
  Weight: 66.7 kg

DRUGS (3)
  1. TRAMETINIB [Suspect]
     Indication: MALIGNANT MELANOMA
     Dosage: 2MG PER DAY
     Route: 048
     Dates: start: 20121025
  2. DABRAFENIB [Suspect]
     Indication: MALIGNANT MELANOMA
     Dosage: 150MG TWICE PER DAY
     Route: 048
     Dates: start: 20121025
  3. TINZAPARIN [Concomitant]
     Indication: DEEP VEIN THROMBOSIS
     Dosage: 14000UNIT PER DAY
     Route: 058
     Dates: start: 20121025, end: 20121119

REACTIONS (1)
  - Alanine aminotransferase increased [Recovered/Resolved]
